FAERS Safety Report 5920940-1 (Version None)
Quarter: 2008Q4

REPORT INFORMATION
  Report Type: 
  Country: None (occurrence: None)
  Receive Date: 20081015
  Receipt Date: 20081015
  Transmission Date: 20090506
  Serious: Yes (Death)
  Sender: FDA-Public Use
  Company Number: None

PATIENT
  Age: 46 Year
  Sex: Male
  Weight: 79.8331 kg

DRUGS (1)
  1. DIGITEK 0.125 MG TAB BERTEK PHA [Suspect]
     Indication: MYOCARDIAL INFARCTION
     Dosage: 1 BY MOUTH DAILY
     Dates: start: 20061119, end: 20070531

REACTIONS (2)
  - CARDIAC ARREST [None]
  - PRODUCT QUALITY ISSUE [None]
